FAERS Safety Report 14300895 (Version 2)
Quarter: 2018Q1

REPORT INFORMATION
  Report Type: Spontaneous
  Country: DE (occurrence: DE)
  Receive Date: 20171219
  Receipt Date: 20180111
  Transmission Date: 20180509
  Serious: Yes (Other)
  Sender: FDA-Public Use
  Company Number: PHHY2017DE187294

PATIENT
  Sex: Male
  Weight: 75 kg

DRUGS (4)
  1. SIMBRINZA [Suspect]
     Active Substance: BRIMONIDINE TARTRATE\BRINZOLAMIDE
     Indication: INTRAOCULAR PRESSURE INCREASED
     Dosage: 1 GTT, BID
     Route: 047
     Dates: start: 20171026, end: 20171129
  2. ASPIRIN. [Concomitant]
     Active Substance: ASPIRIN
     Indication: PRODUCT USED FOR UNKNOWN INDICATION
     Dosage: 100 MG, QD
     Route: 048
  3. METOPROLOL SUCCINATE. [Concomitant]
     Active Substance: METOPROLOL SUCCINATE
     Indication: PRODUCT USED FOR UNKNOWN INDICATION
     Dosage: 47.5 MG, QD
     Route: 048
  4. LOSARTAN. [Concomitant]
     Active Substance: LOSARTAN
     Indication: HYPERTENSION
     Dosage: 25 MG, QD
     Route: 048

REACTIONS (12)
  - Arrhythmia [Recovered/Resolved]
  - Chest pain [Unknown]
  - Palpitations [Unknown]
  - Extrasystoles [Unknown]
  - Hyperhidrosis [Unknown]
  - Bradycardia [Recovered/Resolved]
  - Troponin increased [Unknown]
  - Blood pressure increased [Recovered/Resolved]
  - Frequent bowel movements [Recovered/Resolved]
  - Flatulence [Recovered/Resolved]
  - Pallor [Unknown]
  - Nausea [Recovered/Resolved]

NARRATIVE: CASE EVENT DATE: 20171109
